FAERS Safety Report 9753152 (Version 2)
Quarter: 2013Q4

REPORT INFORMATION
  Report Type: Spontaneous
  Country: US (occurrence: US)
  Receive Date: 20131213
  Receipt Date: 20131213
  Transmission Date: 20140711
  Serious: No
  Sender: FDA-Public Use
  Company Number: US-GILEAD-2010-0026425

PATIENT
  Age: 55 Year
  Sex: Female

DRUGS (10)
  1. LETAIRIS [Suspect]
     Indication: PULMONARY ARTERIAL HYPERTENSION
     Route: 048
     Dates: start: 20091210
  2. BYETTA [Concomitant]
  3. IRON [Concomitant]
  4. COUMADIN [Concomitant]
  5. LEVOTHYROXINE [Concomitant]
  6. ADVAIR DISKU [Concomitant]
  7. NOVOLIN N [Concomitant]
  8. PRAVASTATIN [Concomitant]
  9. METFORMIN [Concomitant]
  10. ATENOLOL [Concomitant]

REACTIONS (1)
  - Drug ineffective [Unknown]
